FAERS Safety Report 20684821 (Version 1)
Quarter: 2022Q2

REPORT INFORMATION
  Report Type: Spontaneous
  Country: FR (occurrence: FR)
  Receive Date: 20220407
  Receipt Date: 20220407
  Transmission Date: 20220721
  Serious: Yes (Hospitalization)
  Sender: FDA-Public Use
  Company Number: None

PATIENT
  Age: 70 Year
  Sex: Female
  Weight: 63 kg

DRUGS (10)
  1. CLINDAMYCIN [Suspect]
     Active Substance: CLINDAMYCIN
     Indication: Antibiotic therapy
     Dosage: 2 DF IN THE MORNING, 2 DF AT NOON AND 2 DF IN EVENING
     Route: 048
     Dates: start: 20220211, end: 20220302
  2. FLUCONAZOLE [Suspect]
     Active Substance: FLUCONAZOLE
     Indication: Antibiotic therapy
     Dosage: 1 DF 1XDAY
     Route: 048
     Dates: start: 20220211, end: 20220302
  3. CIPROFLOXACIN HYDROCHLORIDE [Suspect]
     Active Substance: CIPROFLOXACIN HYDROCHLORIDE
     Indication: Antibiotic therapy
     Dosage: 1 DF IN THE MORNING, 1 DF AT NOON AND 1 DF IN THE EVENING
     Route: 048
     Dates: start: 20220211, end: 20220302
  4. DOLIPRANE [Concomitant]
     Active Substance: ACETAMINOPHEN
     Dosage: UNK
  5. FULVESTRANT [Concomitant]
     Active Substance: FULVESTRANT
     Dosage: UNK
  6. ABEMACICLIB [Concomitant]
     Active Substance: ABEMACICLIB
     Dosage: UNK
  7. VESICARE [Concomitant]
     Active Substance: SOLIFENACIN SUCCINATE
     Dosage: UNK
  8. CALCIUM CARBONATE [Concomitant]
     Active Substance: CALCIUM CARBONATE
     Dosage: UNK
  9. LERCANIDIPINE [Concomitant]
     Active Substance: LERCANIDIPINE
     Dosage: UNK
  10. METHYLPREDNISOLONE SODIUM SUCCINATE [Concomitant]
     Active Substance: METHYLPREDNISOLONE SODIUM SUCCINATE
     Dosage: UNK

REACTIONS (1)
  - Rash maculo-papular [Recovered/Resolved]

NARRATIVE: CASE EVENT DATE: 20220226
